FAERS Safety Report 22114141 (Version 1)
Quarter: 2023Q1

REPORT INFORMATION
  Report Type: Spontaneous
  Country: US (occurrence: None)
  Receive Date: 20230317
  Receipt Date: 20230317
  Transmission Date: 20230418
  Serious: Yes (Other)
  Sender: FDA-Public Use
  Company Number: None

PATIENT
  Age: 30 Year
  Sex: Female
  Weight: 58.5 kg

DRUGS (6)
  1. ARTIFICIAL EYE [Suspect]
     Active Substance: MINERAL OIL\PETROLATUM
     Indication: Dry eye
     Dosage: OTHER QUANTITY : 1 1TUBE DAILY;?FREQUENCY : AS NEEDED;?
     Route: 047
     Dates: start: 20221001, end: 20230131
  2. PRED FORTE [Concomitant]
     Active Substance: PREDNISOLONE ACETATE
  3. COMBIGAN [Concomitant]
     Active Substance: BRIMONIDINE TARTRATE\TIMOLOL MALEATE
  4. ADVAIR HFA [Concomitant]
     Active Substance: FLUTICASONE PROPIONATE\SALMETEROL XINAFOATE
  5. DOXEPIN [Concomitant]
     Active Substance: DOXEPIN
  6. TYLENOL [Concomitant]
     Active Substance: ACETAMINOPHEN

REACTIONS (4)
  - Eye infection bacterial [None]
  - Pseudomonas infection [None]
  - Transmission of an infectious agent via product [None]
  - Recalled product administered [None]

NARRATIVE: CASE EVENT DATE: 20221112
